FAERS Safety Report 23917855 (Version 2)
Quarter: 2024Q2

REPORT INFORMATION
  Report Type: Report from Study
  Country: CN (occurrence: CN)
  Receive Date: 20240530
  Receipt Date: 20240603
  Transmission Date: 20240716
  Serious: Yes (Other)
  Sender: FDA-Public Use
  Company Number: CN-UCBSA-2024025704

PATIENT
  Sex: Male

DRUGS (7)
  1. LEVETIRACETAM [Suspect]
     Active Substance: LEVETIRACETAM
     Indication: Neuronal intranuclear inclusion disease
     Dosage: UNK
  2. LEVETIRACETAM [Suspect]
     Active Substance: LEVETIRACETAM
     Indication: Generalised tonic-clonic seizure
  3. LEVETIRACETAM [Suspect]
     Active Substance: LEVETIRACETAM
     Indication: Off label use
  4. TOPIRAMATE [Suspect]
     Active Substance: TOPIRAMATE
     Indication: Neuronal intranuclear inclusion disease
     Dosage: UNK
  5. TOPIRAMATE [Suspect]
     Active Substance: TOPIRAMATE
     Indication: Generalised tonic-clonic seizure
  6. CLONAZEPAM [Suspect]
     Active Substance: CLONAZEPAM
     Indication: Neuronal intranuclear inclusion disease
     Dosage: UNK
  7. CLONAZEPAM [Suspect]
     Active Substance: CLONAZEPAM
     Indication: Generalised tonic-clonic seizure

REACTIONS (3)
  - Myoclonic epilepsy [Unknown]
  - Drug effective for unapproved indication [Unknown]
  - Off label use [Unknown]
